FAERS Safety Report 23465754 (Version 1)
Quarter: 2024Q1

REPORT INFORMATION
  Report Type: Spontaneous
  Country: JP (occurrence: JP)
  Receive Date: 20240201
  Receipt Date: 20240201
  Transmission Date: 20240410
  Serious: Yes (Other)
  Sender: FDA-Public Use
  Company Number: JP-ASTELLAS-2022JP011419

PATIENT
  Age: 43 Year
  Sex: Female

DRUGS (20)
  1. XOSPATA [Suspect]
     Active Substance: GILTERITINIB
     Indication: Acute myeloid leukaemia
     Route: 065
  2. XOSPATA [Suspect]
     Active Substance: GILTERITINIB
     Route: 065
  3. XOSPATA [Suspect]
     Active Substance: GILTERITINIB
     Dosage: 80 MG/BODY, EVERY OTHER DAY
     Route: 065
  4. XOSPATA [Suspect]
     Active Substance: GILTERITINIB
     Route: 065
  5. XOSPATA [Suspect]
     Active Substance: GILTERITINIB
     Dosage: 40 MG/BODY, EVERY OTHER DAY
     Route: 065
  6. TACROLIMUS [Suspect]
     Active Substance: TACROLIMUS
     Indication: Prophylaxis against graft versus host disease
     Dosage: UNK UNK, UNKNOWN FREQ.
     Route: 065
  7. CYTARABINE [Concomitant]
     Active Substance: CYTARABINE
     Indication: Acute myeloid leukaemia
     Dosage: 100 MG/M2/DAY, UNKNOWN FREQ.
     Route: 065
  8. CYTARABINE [Concomitant]
     Active Substance: CYTARABINE
     Dosage: 4000 MG/M2/DAY, UNKNOWN FREQ.
     Route: 065
  9. CYTARABINE [Concomitant]
     Active Substance: CYTARABINE
     Dosage: 100 MG/M2/DAY, UNKNOWN FREQ.
     Route: 065
  10. CYTARABINE [Concomitant]
     Active Substance: CYTARABINE
     Route: 065
  11. IDARUBICIN HYDROCHLORIDE [Concomitant]
     Active Substance: IDARUBICIN HYDROCHLORIDE
     Indication: Acute myeloid leukaemia
     Dosage: 12 MG/M2/DAY, UNKNOWN FREQ.
     Route: 065
  12. FLUDARABINE [Concomitant]
     Active Substance: FLUDARABINE PHOSPHATE
     Indication: Stem cell transplant
     Route: 065
  13. BUSULFAN [Concomitant]
     Active Substance: BUSULFAN
     Indication: Stem cell transplant
     Route: 065
  14. MELPHALAN [Concomitant]
     Active Substance: MELPHALAN
     Indication: Stem cell transplant
     Route: 065
  15. CYCLOPHOSPHAMIDE [Concomitant]
     Active Substance: CYCLOPHOSPHAMIDE
     Indication: Prophylaxis against graft versus host disease
     Dosage: 50 MG/KG/DAY, UNKNOWN FREQ.
     Route: 065
  16. MYCOPHENOLATE MOFETIL [Concomitant]
     Active Substance: MYCOPHENOLATE MOFETIL
     Indication: Prophylaxis against graft versus host disease
     Dosage: UNK UNK, UNKNOWN FREQ.
     Route: 065
  17. HYDROCORTISONE [Concomitant]
     Active Substance: HYDROCORTISONE
     Indication: Product used for unknown indication
     Dosage: 200 MG/BODY, UNKNOWN FREQ.
     Route: 065
  18. HYDROCORTISONE [Concomitant]
     Active Substance: HYDROCORTISONE
     Dosage: GRADUALLY DECREASED, UNKNOWN FREQ.
     Route: 065
  19. PREDNISOLONE [Concomitant]
     Active Substance: PREDNISOLONE
     Indication: Product used for unknown indication
     Dosage: 0.4 MG/KG, UNKNOWN FREQ.
     Route: 065
  20. PREDNISOLONE [Concomitant]
     Active Substance: PREDNISOLONE
     Dosage: GRADUALLY DECREASED, UNKNOWN FREQ.
     Route: 065

REACTIONS (5)
  - Engraftment syndrome [Unknown]
  - Acute graft versus host disease in skin [Unknown]
  - Febrile neutropenia [Unknown]
  - Hepatic function abnormal [Unknown]
  - Off label use [Unknown]
